FAERS Safety Report 6480646-X (Version None)
Quarter: 2009Q4

REPORT INFORMATION
  Report Type: 
  Country: None (occurrence: None)
  Receive Date: 20091208
  Receipt Date: 20091130
  Transmission Date: 20100525
  Serious: Yes (Other)
  Sender: FDA-Public Use
  Company Number: NL-PFIZER INC-2009291611

PATIENT
  Age: 67 Year
  Sex: Male

DRUGS (1)
  1. TAHOR [Suspect]
     Dosage: 20 MG, UNK
     Dates: start: 20091012

REACTIONS (4)
  - GLOSSODYNIA [None]
  - OEDEMA MOUTH [None]
  - SWOLLEN TONGUE [None]
  - TONGUE DISCOLOURATION [None]
